FAERS Safety Report 13590258 (Version 1)
Quarter: 2017Q2

REPORT INFORMATION
  Report Type: Spontaneous
  Country: US (occurrence: US)
  Receive Date: 20170529
  Receipt Date: 20170529
  Transmission Date: 20170830
  Serious: Yes (Disabling)
  Sender: FDA-Public Use
  Company Number: None

PATIENT
  Age: 32 Year
  Sex: Female
  Weight: 61.65 kg

DRUGS (7)
  1. ZYRTEC [Concomitant]
     Active Substance: CETIRIZINE HYDROCHLORIDE
  2. LIPITOR [Concomitant]
     Active Substance: ATORVASTATIN CALCIUM
  3. NASACORT [Concomitant]
     Active Substance: TRIAMCINOLONE ACETONIDE
  4. CIPROFLOXACIN. [Suspect]
     Active Substance: CIPROFLOXACIN
     Indication: FOOD POISONING
     Dates: start: 20170516, end: 20170518
  5. NORTREL 7/7/7 [Concomitant]
     Active Substance: ETHINYL ESTRADIOL\NORETHINDRONE
  6. ASTELIN [Concomitant]
     Active Substance: AZELASTINE HYDROCHLORIDE
  7. CIPROFLOXACIN. [Suspect]
     Active Substance: CIPROFLOXACIN
     Indication: DIARRHOEA INFECTIOUS
     Dates: start: 20170516, end: 20170518

REACTIONS (10)
  - Dyspepsia [None]
  - Feeling abnormal [None]
  - Impaired work ability [None]
  - Diarrhoea [None]
  - Decreased appetite [None]
  - Disturbance in attention [None]
  - Panic attack [None]
  - Anxiety [None]
  - Weight decreased [None]
  - Quality of life decreased [None]

NARRATIVE: CASE EVENT DATE: 20170517
